FAERS Safety Report 17490194 (Version 1)
Quarter: 2020Q1

REPORT INFORMATION
  Report Type: Spontaneous
  Country: US (occurrence: US)
  Receive Date: 20200303
  Receipt Date: 20200303
  Transmission Date: 20200409
  Serious: No
  Sender: FDA-Public Use
  Company Number: US-AKORN PHARMACEUTICALS-2019AKN02030

PATIENT
  Sex: Female
  Weight: 80 kg

DRUGS (2)
  1. NORETHINDRONE ACETATE / ETHINYL ESTRADIOL [Concomitant]
  2. MYORISAN [Suspect]
     Active Substance: ISOTRETINOIN
     Indication: ACNE CYSTIC
     Dosage: 40 MG, 2X/DAY
     Route: 048
     Dates: start: 20190716, end: 20190821

REACTIONS (1)
  - Bone pain [Unknown]

NARRATIVE: CASE EVENT DATE: 2019
